FAERS Safety Report 6187584-0 (Version None)
Quarter: 2009Q2

REPORT INFORMATION
  Report Type: 
  Country: None (occurrence: None)
  Receive Date: 20090508
  Receipt Date: 20090424
  Transmission Date: 20091009
  Serious: Yes (Hospitalization)
  Sender: FDA-Public Use
  Company Number: 2009S1007379

PATIENT
  Age: 71 Year
  Sex: Female
  Weight: 68 kg

DRUGS (8)
  1. ENALAPRIL MALEATE [Suspect]
     Indication: HYPERTENSION
     Dosage: 5 MG; ; ORAL
     Route: 048
     Dates: start: 20000101, end: 20090107
  2. FURESIS (FUROSEMIDE) [Suspect]
     Indication: HYPERTENSION
     Dosage: 40 MG; ; ORAL
     Route: 048
     Dates: end: 20090107
  3. MICARDIS [Suspect]
     Indication: HYPERTENSION
     Dosage: 80 MG; ; ORAL
     Route: 048
     Dates: start: 19980101, end: 20090107
  4. DOPEGYT (METHYLDOPA) [Suspect]
     Indication: HYPERTENSION
     Dosage: 250 MG; ; ORAL
     Route: 048
     Dates: start: 20000101, end: 20090107
  5. DIGITOXIN [Concomitant]
  6. LEVOTHYROXINE SODIUM [Concomitant]
  7. ASPIRIN [Concomitant]
  8. ACTRAPID [Concomitant]

REACTIONS (2)
  - BLOOD CREATININE INCREASED [None]
  - DRUG INTERACTION [None]
